FAERS Safety Report 11241086 (Version 1)
Quarter: 2015Q3

REPORT INFORMATION
  Report Type: Report from Study
  Country: US (occurrence: US)
  Receive Date: 20150706
  Receipt Date: 20150706
  Transmission Date: 20151125
  Serious: Yes (Other)
  Sender: FDA-Public Use
  Company Number: US-BAXALTA-2015BAX021500

PATIENT
  Age: 16 Year
  Sex: Female
  Weight: 99.77 kg

DRUGS (5)
  1. HUMAN NORMAL IMMUNOGLOBULIN; HYALURONIDASE [Suspect]
     Active Substance: HUMAN IMMUNOGLOBULIN G\HYALURONIDASE RECOMBINANT HUMAN
     Indication: HYPOGAMMAGLOBULINAEMIA
     Dosage: UNK UNK, EVERY 3 WK
     Route: 065
     Dates: start: 20150312
  2. PRIVIGEN [Concomitant]
     Active Substance: HUMAN IMMUNOGLOBULIN G
     Dosage: UNK
     Dates: start: 201104
  3. HIZENTRA [Concomitant]
     Active Substance: HUMAN IMMUNOGLOBULIN G
     Indication: SELECTIVE POLYSACCHARIDE ANTIBODY DEFICIENCY
  4. HUMAN NORMAL IMMUNOGLOBULIN; HYALURONIDASE [Suspect]
     Active Substance: HUMAN IMMUNOGLOBULIN G\HYALURONIDASE RECOMBINANT HUMAN
     Indication: SELECTIVE POLYSACCHARIDE ANTIBODY DEFICIENCY
     Dosage: 30 G, EVERY 3 WK, 3RD DOSE OF RAMP UP
     Route: 065
     Dates: start: 20150406
  5. HIZENTRA [Concomitant]
     Active Substance: HUMAN IMMUNOGLOBULIN G
     Indication: HYPOGAMMAGLOBULINAEMIA
     Dosage: 4 G, 10 X MONTHS
     Dates: start: 201107

REACTIONS (1)
  - Headache [Recovered/Resolved]

NARRATIVE: CASE EVENT DATE: 20150409
